FAERS Safety Report 13608315 (Version 2)
Quarter: 2017Q3

REPORT INFORMATION
  Report Type: Spontaneous
  Country: US (occurrence: US)
  Receive Date: 20170602
  Receipt Date: 20170818
  Transmission Date: 20171127
  Serious: Yes (Death, Hospitalization, Other)
  Sender: FDA-Public Use
  Company Number: US-PFIZER INC-2017241715

PATIENT
  Age: 64 Year
  Sex: Male

DRUGS (8)
  1. SUTENT [Suspect]
     Active Substance: SUNITINIB MALATE
     Indication: RENAL CELL CARCINOMA
     Dosage: 37.5 MG, DAILY (FOR 2 WEEKS)
     Route: 048
     Dates: start: 20161028, end: 20161116
  2. DURAGESIC [Concomitant]
     Active Substance: FENTANYL
     Dosage: 25 MCG/HR TOPICAL EVERY 72 HOURS
     Route: 061
  3. LACTULOSE. [Concomitant]
     Active Substance: LACTULOSE
     Dosage: 20 G, 2X/DAY
     Route: 048
  4. DULCOLAX NOS [Concomitant]
     Active Substance: BISACODYL OR DOCUSATE SODIUM
     Indication: CONSTIPATION
     Dosage: 10 MG, AS NEEDED (DAILY)
     Route: 054
  5. DILAUDID [Concomitant]
     Active Substance: HYDROMORPHONE HYDROCHLORIDE
     Indication: PAIN
     Dosage: 4 MG, AS NEEDED (EVERY 4 HOURS)
     Route: 048
  6. OXYIR [Concomitant]
     Active Substance: OXYCODONE HYDROCHLORIDE
     Indication: PAIN
     Dosage: 10 MG, AS NEEDED (EVERY 4 HOURS)
     Route: 048
  7. NICODERM CQ [Concomitant]
     Active Substance: NICOTINE
     Dosage: 7 MG, DAILY
     Route: 061
  8. ALBUTEROL W/IPRATROPIUM [Concomitant]
     Active Substance: ALBUTEROL\IPRATROPIUM
     Dosage: 3 ML, EVERY 4 HRS [ML (ALBUTEROL/IPRATROPIUM 3-0.5 MG/3 ML) 3 ML NEB 3 ML NEBULIZATION]

REACTIONS (11)
  - Condition aggravated [Unknown]
  - Bacterial test positive [Unknown]
  - Blood glucose decreased [Unknown]
  - Dyspnoea [Fatal]
  - Condition aggravated [Fatal]
  - Pleural effusion [Unknown]
  - White blood cell count increased [Unknown]
  - Chronic obstructive pulmonary disease [Fatal]
  - Haematuria [Recovered/Resolved]
  - Oxygen saturation decreased [Recovering/Resolving]
  - Pleuritic pain [Unknown]

NARRATIVE: CASE EVENT DATE: 2016
